FAERS Safety Report 19035464 (Version 1)
Quarter: 2021Q1

REPORT INFORMATION
  Report Type: Report from Study
  Country: IN (occurrence: IN)
  Receive Date: 20210320
  Receipt Date: 20210320
  Transmission Date: 20210420
  Serious: Yes (Death)
  Sender: FDA-Public Use
  Company Number: NVSC2020IN337997

PATIENT
  Age: 80 Year
  Sex: Male

DRUGS (1)
  1. VYMADA [Suspect]
     Active Substance: SACUBITRIL\VALSARTAN
     Indication: CARDIAC FAILURE CHRONIC
     Dosage: 0.5 DF, BID (100 MG 1/2 BD)
     Route: 048
     Dates: start: 20201203

REACTIONS (3)
  - Wrong technique in product usage process [Unknown]
  - Death [Fatal]
  - Product prescribing error [Unknown]

NARRATIVE: CASE EVENT DATE: 20201203
